FAERS Safety Report 19491109 (Version 1)
Quarter: 2021Q3

REPORT INFORMATION
  Report Type: Spontaneous
  Country: DE (occurrence: DE)
  Receive Date: 20210705
  Receipt Date: 20210705
  Transmission Date: 20211014
  Serious: Yes (Hospitalization)
  Sender: FDA-Public Use
  Company Number: DE-TEVA-2021-DE-1928975

PATIENT
  Age: 57 Year
  Sex: Female

DRUGS (3)
  1. SPIRONOLACTONE. [Suspect]
     Active Substance: SPIRONOLACTONE
     Indication: HYPOKALAEMIA
     Dosage: 200 MILLIGRAM DAILY;
     Route: 065
  2. POTASSIUM SUPPLEMENTATION [POTASSIUM CITRATE] [Suspect]
     Active Substance: POTASSIUM CITRATE
     Indication: HYPOKALAEMIA
     Dosage: 80.25 MMOL/DAY
     Route: 065
  3. RAMIPRIL. [Suspect]
     Active Substance: RAMIPRIL
     Indication: HYPOKALAEMIA
     Dosage: 10 MILLIGRAM DAILY;
     Route: 065

REACTIONS (3)
  - Hyperkalaemia [Recovering/Resolving]
  - Electrocardiogram PR prolongation [Unknown]
  - Electrocardiogram QRS complex prolonged [Unknown]
